FAERS Safety Report 10218650 (Version 1)
Quarter: 2014Q2

REPORT INFORMATION
  Report Type: Spontaneous
  Country: US (occurrence: None)
  Receive Date: 20140603
  Receipt Date: 20140603
  Transmission Date: 20141212
  Serious: Yes (Death)
  Sender: FDA-Public Use
  Company Number: 2014AP003219

PATIENT
  Age: 77 Year
  Sex: Male
  Weight: 63 kg

DRUGS (12)
  1. FERRIPROX (DEFERIPRONE) TABLET, 500MG [Suspect]
     Indication: HAEMOCHROMATOSIS
     Route: 048
     Dates: start: 20140217, end: 20140426
  2. DESFERAL (DEFEROXAMINE MESILATE) [Concomitant]
  3. PROTONIX (PANTOPRAZOLE SODIUM SESQUIHYDRATE) [Concomitant]
  4. HYDREA (HYDROXYCARBAMIDE) [Concomitant]
  5. WARFARIN (WARFARIN) [Concomitant]
  6. MIDODRINE (MIDODRINE) [Concomitant]
  7. ULTRAM /00599202/ (TRAMADOL HYDROCHLORIDE) [Concomitant]
  8. AVODART (DUTASTERIDE) CAPSULES [Concomitant]
  9. AMBIEN (ZOLPIDEM TARTRATE) [Concomitant]
  10. SAW PALMETTO /00833501/ (SERENOA REPENS) [Concomitant]
  11. GLUCOSAMINE CHONDROITIN /01625901/ (CHONDROITION SULFATE, GLUCOSAMINE) [Concomitant]
  12. CALCIUM (CALCIUM) [Concomitant]

REACTIONS (1)
  - Leukaemia [None]
